FAERS Safety Report 10273784 (Version 1)
Quarter: 2014Q2

REPORT INFORMATION
  Report Type: Spontaneous
  Country: US (occurrence: None)
  Receive Date: 20140630
  Receipt Date: 20140630
  Transmission Date: 20141212
  Serious: Yes (Other)
  Sender: FDA-Public Use
  Company Number: None

PATIENT
  Age: 69 Year
  Sex: Male
  Weight: 78.93 kg

DRUGS (1)
  1. VALSARTAN [Suspect]
     Indication: HYPERTENSION
     Dosage: THERAPY?^ LONG TIME TO 6-3-14 (A PT NOT SURE WHEN THIS STARTED)
     Route: 048
     Dates: end: 20140603

REACTIONS (3)
  - Muscle spasms [None]
  - Back pain [None]
  - Pain [None]
